FAERS Safety Report 4384045-6 (Version None)
Quarter: 2004Q2

REPORT INFORMATION
  Report Type: 
  Country: None (occurrence: None)
  Receive Date: 20040621
  Receipt Date: 20040609
  Transmission Date: 20050107
  Serious: Yes (Hospitalization)
  Sender: FDA-Public Use
  Company Number: K200400864

PATIENT
  Age: 57 Year
  Sex: Female

DRUGS (10)
  1. ALTACE [Suspect]
     Dosage: 2.5 MG, TIW, ORAL
     Route: 048
  2. TILDIEM (DILTIAZEM HYDROCHLORIDE) 60MG [Suspect]
     Dosage: 180 MG, QD, ORAL
     Route: 048
  3. INDOCID (INDOMETACIN) 25MG [Suspect]
     Dosage: 25 MG, QD, ORAL
     Route: 048
  4. ARCALION (BISBUTIAMINE) [Concomitant]
  5. FERROUS SULFATE TAB [Concomitant]
  6. ESBERIVEN FORTE (MELILOT, RUTOSIDE) [Concomitant]
  7. INIPOMP (PANTOPRAZOLE) [Concomitant]
  8. LEXOMIL (BROMAZEPAM) [Concomitant]
  9. TOBREX (TOBRAMYCIN SULFATE) [Concomitant]
  10. CELLUVISC (SODIUM CHLORIDE, CARMELLOSE, CALCIUM CHLORIDE DIHYDRATE, SO [Concomitant]

REACTIONS (9)
  - BLOOD CHLORIDE DECREASED [None]
  - BLOOD GLUCOSE INCREASED [None]
  - BLOOD SODIUM DECREASED [None]
  - NEPHRITIS INTERSTITIAL [None]
  - PCO2 DECREASED [None]
  - PROTEIN TOTAL INCREASED [None]
  - PULMONARY HYPERTENSION [None]
  - RENAL FAILURE [None]
  - SCLERODERMA [None]
